FAERS Safety Report 6022727-0 (Version None)
Quarter: 2008Q4

REPORT INFORMATION
  Report Type: 
  Country: None (occurrence: None)
  Receive Date: 20081221
  Receipt Date: 20081221
  Transmission Date: 20090506
  Serious: Yes (Hospitalization)
  Sender: FDA-Public Use
  Company Number: None

PATIENT
  Age: 19 Year
  Sex: Female
  Weight: 53.5244 kg

DRUGS (1)
  1. NITROFURANTOIN [Suspect]
     Indication: URINARY TRACT INFECTION
     Dosage: 100MG 2 ADAY PO
     Route: 048
     Dates: start: 20081216, end: 20081219

REACTIONS (7)
  - ABDOMINAL PAIN UPPER [None]
  - BRAIN OEDEMA [None]
  - DRUG EXPOSURE DURING PREGNANCY [None]
  - HEADACHE [None]
  - HYPERAESTHESIA [None]
  - ILL-DEFINED DISORDER [None]
  - VOMITING [None]
